FAERS Safety Report 14583447 (Version 1)
Quarter: 2018Q1

REPORT INFORMATION
  Report Type: Spontaneous
  Country: FR (occurrence: FR)
  Receive Date: 20180228
  Receipt Date: 20180228
  Transmission Date: 20180509
  Serious: Yes (Life-Threatening, Hospitalization, Other)
  Sender: FDA-Public Use
  Company Number: FR-OTSUKA-DJ201306664

PATIENT

DRUGS (2)
  1. ABILIFY [Suspect]
     Active Substance: ARIPIPRAZOLE
     Indication: BIPOLAR DISORDER
     Route: 048
     Dates: start: 2013
  2. TERALITHE [Concomitant]
     Active Substance: LITHIUM CARBONATE
     Route: 065

REACTIONS (3)
  - Anoxia [Unknown]
  - Cardiac arrest [Unknown]
  - Delirium [Unknown]

NARRATIVE: CASE EVENT DATE: 201307
